FAERS Safety Report 14012819 (Version 2)
Quarter: 2019Q3

REPORT INFORMATION
  Report Type: Report from Study
  Country: US (occurrence: US)
  Receive Date: 20170926
  Receipt Date: 20190711
  Transmission Date: 20191004
  Serious: Yes (Other)
  Sender: FDA-Public Use
  Company Number: US-JAZZ-2016-US-024266

PATIENT
  Age: 78 Year
  Sex: Female

DRUGS (24)
  1. FISH OIL [Concomitant]
     Active Substance: FISH OIL
  2. NYSTATIN. [Concomitant]
     Active Substance: NYSTATIN
  3. OXYCODONE HYDROCHLORIDE. [Concomitant]
     Active Substance: OXYCODONE HYDROCHLORIDE
  4. CALCIUM CARBONATE. [Concomitant]
     Active Substance: CALCIUM CARBONATE
  5. CULTURELLE [Concomitant]
     Active Substance: LACTOBACILLUS RHAMNOSUS
  6. LANSOPRAZOLE. [Concomitant]
     Active Substance: LANSOPRAZOLE
  7. XYREM [Suspect]
     Active Substance: SODIUM OXYBATE
     Indication: CATAPLEXY
     Dosage: 3 G, QD
     Route: 048
     Dates: start: 200712, end: 2008
  8. DOXYCYCLINE HYCLATE. [Concomitant]
     Active Substance: DOXYCYCLINE HYCLATE
  9. FUROSEMIDE. [Concomitant]
     Active Substance: FUROSEMIDE
  10. LECITHIN [Concomitant]
     Active Substance: LECITHIN
  11. LYSINE [Concomitant]
     Active Substance: LYSINE
  12. VITAMIN D2 [Concomitant]
     Active Substance: ERGOCALCIFEROL
  13. WARFARIN SODIUM. [Concomitant]
     Active Substance: WARFARIN SODIUM
  14. XYREM [Suspect]
     Active Substance: SODIUM OXYBATE
     Dosage: 3 G, BID
     Route: 048
     Dates: start: 200806
  15. AMMONIUM LACTATE. [Concomitant]
     Active Substance: AMMONIUM LACTATE
  16. METHYLPHENIDATE. [Concomitant]
     Active Substance: METHYLPHENIDATE
  17. POTASSIUM CL [Concomitant]
     Active Substance: POTASSIUM CHLORIDE
  18. SIMVASTATIN. [Concomitant]
     Active Substance: SIMVASTATIN
  19. XYREM [Suspect]
     Active Substance: SODIUM OXYBATE
     Indication: NARCOLEPSY
     Dosage: 3 G, BID
     Route: 048
     Dates: start: 200705, end: 2007
  20. PAROXETINE HCL [Concomitant]
     Active Substance: PAROXETINE HYDROCHLORIDE
  21. MUPIROCIN. [Concomitant]
     Active Substance: MUPIROCIN
  22. DEXEDRINE [Concomitant]
     Active Substance: DEXTROAMPHETAMINE SULFATE
  23. PREVACID [Concomitant]
     Active Substance: LANSOPRAZOLE
  24. CALCIUM [Concomitant]
     Active Substance: CALCIUM

REACTIONS (8)
  - Gait disturbance [Not Recovered/Not Resolved]
  - Oedema peripheral [Unknown]
  - Coagulopathy [Not Recovered/Not Resolved]
  - Pain in extremity [Recovering/Resolving]
  - Blood cholesterol increased [Not Recovered/Not Resolved]
  - Thrombosis [Not Recovered/Not Resolved]
  - Somnolence [Unknown]
  - Pollakiuria [Unknown]

NARRATIVE: CASE EVENT DATE: 2014
